FAERS Safety Report 15727472 (Version 1)
Quarter: 2018Q4

REPORT INFORMATION
  Report Type: Spontaneous
  Country: BE (occurrence: BE)
  Receive Date: 20181217
  Receipt Date: 20181217
  Transmission Date: 20190205
  Serious: Yes (Other)
  Sender: FDA-Public Use
  Company Number: BE-AMGEN-BELSP2018178977

PATIENT
  Sex: Male

DRUGS (3)
  1. VECTIBIX [Suspect]
     Active Substance: PANITUMUMAB
     Indication: PRODUCT USED FOR UNKNOWN INDICATION
     Dosage: UNK
     Route: 065
     Dates: start: 20180829, end: 2018
  2. MINOCIN [Concomitant]
     Active Substance: MINOCYCLINE HYDROCHLORIDE
     Indication: PROPHYLAXIS
     Dosage: 100 MG, QD
  3. VECTIBIX [Suspect]
     Active Substance: PANITUMUMAB
     Dosage: UNK, 80%
     Route: 065
     Dates: start: 2018, end: 2018

REACTIONS (2)
  - Staphylococcal infection [Unknown]
  - Impetigo [Unknown]

NARRATIVE: CASE EVENT DATE: 2018
